FAERS Safety Report 24053449 (Version 1)
Quarter: 2024Q3

REPORT INFORMATION
  Report Type: Spontaneous
  Country: CN (occurrence: CN)
  Receive Date: 20240705
  Receipt Date: 20240705
  Transmission Date: 20241017
  Serious: Yes (Hospitalization)
  Sender: ABBVIE
  Company Number: CN-PFIZER INC-PV202400086417

PATIENT
  Age: 76 Year
  Sex: Male
  Weight: 71 kg

DRUGS (6)
  1. AVIBACTAM SODIUM [Suspect]
     Active Substance: AVIBACTAM SODIUM
     Indication: Biliary tract infection
     Dosage: 0.94 G, 2X/DAY
     Route: 065
     Dates: start: 20240528
  2. SODIUM CHLORIDE [Concomitant]
     Active Substance: SODIUM CHLORIDE
     Indication: Vehicle solution use
     Dosage: TIME INTERVAL: 0.33333333 DAYS: 250 ML, 3X/DAY
     Route: 041
     Dates: start: 20240519, end: 20240608
  3. SODIUM CHLORIDE [Concomitant]
     Active Substance: SODIUM CHLORIDE
     Indication: Vehicle solution use
     Dosage: 45 ML, 2X/DAY
     Route: 065
     Dates: start: 20240528, end: 20240622
  4. SODIUM CHLORIDE [Concomitant]
     Active Substance: SODIUM CHLORIDE
     Indication: Vehicle solution use
     Dosage: 100 ML, 2X/DAY
     Route: 041
     Dates: start: 20240519, end: 20240528
  5. ISAVUCONAZONIUM SULFATE [Suspect]
     Active Substance: ISAVUCONAZONIUM SULFATE
     Indication: Biliary tract infection
     Dosage: TIME INTERVAL: 0.33333333 DAYS: 200 MG, 3X/DAY
     Route: 041
     Dates: start: 20240519
  6. MEROPENEM [Suspect]
     Active Substance: MEROPENEM
     Indication: Biliary tract infection
     Dosage: 0.5 G, 2X/DAY
     Route: 041
     Dates: start: 20240519, end: 20240528

REACTIONS (2)
  - Dysbiosis [Unknown]
  - Diarrhoea [Unknown]

NARRATIVE: CASE EVENT DATE: 20240602
